FAERS Safety Report 23920592 (Version 1)
Quarter: 2024Q2

REPORT INFORMATION
  Report Type: Spontaneous
  Country: US (occurrence: None)
  Receive Date: 20240530
  Receipt Date: 20240530
  Transmission Date: 20240716
  Serious: Yes (Hospitalization)
  Sender: FDA-Public Use
  Company Number: None

PATIENT
  Age: 34 Year
  Sex: Male

DRUGS (1)
  1. EPCLUSA [Suspect]
     Active Substance: SOFOSBUVIR\VELPATASVIR
     Indication: Chronic hepatitis C
     Dosage: OTHER QUANTITY : 400-100MG;?FREQUENCY : DAILY;?

REACTIONS (4)
  - Meningitis [None]
  - Staphylococcal infection [None]
  - Escherichia infection [None]
  - Hepatitis C [None]
